FAERS Safety Report 8075256-7 (Version None)
Quarter: 2012Q1

REPORT INFORMATION
  Report Type: 
  Country: None (occurrence: None)
  Receive Date: 20120127
  Receipt Date: 20120117
  Transmission Date: 20120608
  Serious: Yes (Hospitalization)
  Sender: FDA-Public Use
  Company Number: US-JNJFOC-20120106576

PATIENT
  Sex: Female
  Weight: 77.11 kg

DRUGS (1)
  1. REMICADE [Suspect]
     Indication: RHEUMATOID ARTHRITIS
     Route: 042
     Dates: end: 20110401

REACTIONS (7)
  - ABASIA [None]
  - ASTHENIA [None]
  - EATING DISORDER [None]
  - DEHYDRATION [None]
  - ARTHRITIS [None]
  - FLUID INTAKE REDUCED [None]
  - URINARY TRACT INFECTION [None]
